FAERS Safety Report 13556567 (Version 2)
Quarter: 2017Q3

REPORT INFORMATION
  Report Type: Spontaneous
  Country: US (occurrence: US)
  Receive Date: 20170517
  Receipt Date: 20170705
  Transmission Date: 20171127
  Serious: Yes (Other)
  Sender: FDA-Public Use
  Company Number: US-IMPAX LABORATORIES, INC-2017-IPXL-01289

PATIENT
  Sex: Male
  Weight: 72 kg

DRUGS (2)
  1. RYTARY [Suspect]
     Active Substance: CARBIDOPA\LEVODOPA
     Indication: PARKINSON^S DISEASE
     Dosage: UNK
     Route: 048
     Dates: start: 2017, end: 2017
  2. AMANTADINE. [Concomitant]
     Active Substance: AMANTADINE HYDROCHLORIDE
     Indication: PARKINSON^S DISEASE
     Dosage: 100 MG, UNK
     Route: 065
     Dates: start: 2017

REACTIONS (4)
  - Musculoskeletal stiffness [Recovered/Resolved]
  - Dystonia [Recovered/Resolved]
  - Drug effect delayed [Unknown]
  - Deep brain stimulation [Unknown]

NARRATIVE: CASE EVENT DATE: 2017
